FAERS Safety Report 9458439 (Version 1)
Quarter: 2013Q3

REPORT INFORMATION
  Report Type: Spontaneous
  Country: GB (occurrence: GB)
  Receive Date: 20130814
  Receipt Date: 20130814
  Transmission Date: 20140515
  Serious: Yes (Life-Threatening, Hospitalization)
  Sender: FDA-Public Use
  Company Number: PHHY2013GB086845

PATIENT
  Age: 72 Year
  Sex: Female
  Weight: 76.2 kg

DRUGS (7)
  1. DONEPEZIL HYDROCHLORIDE [Suspect]
     Dosage: 5 MG
     Route: 048
     Dates: start: 20130124, end: 20130209
  2. DOXAZOSIN MESILATE [Concomitant]
     Dosage: 4 MG QD
  3. RAMIPRIL [Concomitant]
     Dosage: 10 MG QD
  4. PARACETAMOL [Concomitant]
     Dosage: 500 MG 8QD
  5. CODEINE PHOSPHATE [Concomitant]
     Dosage: 30 MG 8QD
  6. LEVOTHYROXINE [Concomitant]
     Dosage: 25 UG QD
  7. SERETIDE [Concomitant]
     Dosage: 125 UG QID

REACTIONS (2)
  - Blood pressure decreased [Recovered/Resolved]
  - Loss of consciousness [Recovered/Resolved]
